FAERS Safety Report 5761296-7 (Version None)
Quarter: 2008Q2

REPORT INFORMATION
  Report Type: 
  Country: None (occurrence: None)
  Receive Date: 20080604
  Receipt Date: 20080528
  Transmission Date: 20081010
  Serious: No
  Sender: FDA-Public Use
  Company Number: APP200800468

PATIENT
  Age: 70 Year
  Sex: Female
  Weight: 102.5129 kg

DRUGS (26)
  1. HEPARIN SODIUM INJECTION [Suspect]
     Indication: FIBRIN ABNORMAL
     Dosage: 6 ML EACH BAG, INTRAPERITONEAL, 3 ML, IN EACH BAG, INTRAPERITONEAL
     Route: 033
     Dates: start: 20080101
  2. HEPARIN SODIUM INJECTION [Suspect]
     Indication: PROPHYLAXIS
     Dosage: 6 ML EACH BAG, INTRAPERITONEAL, 3 ML, IN EACH BAG, INTRAPERITONEAL
     Route: 033
     Dates: start: 20080101
  3. HEPARIN SODIUM INJECTION [Suspect]
     Indication: FIBRIN ABNORMAL
     Dosage: 6 ML EACH BAG, INTRAPERITONEAL, 3 ML, IN EACH BAG, INTRAPERITONEAL
     Route: 033
     Dates: start: 20080201
  4. HEPARIN SODIUM INJECTION [Suspect]
     Indication: PROPHYLAXIS
     Dosage: 6 ML EACH BAG, INTRAPERITONEAL, 3 ML, IN EACH BAG, INTRAPERITONEAL
     Route: 033
     Dates: start: 20080201
  5. HEPARIN [Suspect]
     Indication: FIBRIN ABNORMAL
     Dosage: 9 ML, PER DAY, INTRAPERITONEAL
     Route: 033
     Dates: start: 20071201, end: 20080125
  6. HEPARIN [Suspect]
     Indication: PROPHYLAXIS
     Dosage: 9 ML, PER DAY, INTRAPERITONEAL
     Route: 033
     Dates: start: 20071201, end: 20080125
  7. HEPARIN [Suspect]
     Indication: FIBRIN ABNORMAL
     Dosage: 9 ML, PER DAY, INTRAPERITONEAL
     Route: 033
     Dates: start: 20080201
  8. HEPARIN [Suspect]
     Indication: PROPHYLAXIS
     Dosage: 9 ML, PER DAY, INTRAPERITONEAL
     Route: 033
     Dates: start: 20080201
  9. PHOSLO [Concomitant]
  10. INSULIN (INSULIN) [Concomitant]
  11. NEXIUM [Concomitant]
  12. REPLIVA (SUCCINIC ACID) [Concomitant]
  13. PLAVIX [Concomitant]
  14. VERAPAMIL [Concomitant]
  15. COREG [Concomitant]
  16. CARDIZEM [Concomitant]
  17. IMDUR [Concomitant]
  18. ZOLOFT [Concomitant]
  19. SLOW-NIACIN [Concomitant]
  20. ALLOPURINOL [Concomitant]
  21. ZEMPLAR [Concomitant]
  22. LYRICA [Concomitant]
  23. ALLEGRA [Concomitant]
  24. MIRAPEX [Concomitant]
  25. REGLAN [Concomitant]
  26. RENAGEL [Concomitant]

REACTIONS (29)
  - ABDOMINAL PAIN [None]
  - BURNING SENSATION [None]
  - CHEST PAIN [None]
  - DIZZINESS [None]
  - DRUG INEFFECTIVE [None]
  - DYSKINESIA [None]
  - DYSPNOEA [None]
  - ERYTHEMA [None]
  - FLUSHING [None]
  - HEADACHE [None]
  - HEART RATE INCREASED [None]
  - HYPERHIDROSIS [None]
  - HYPOTENSION [None]
  - LACRIMATION INCREASED [None]
  - MALAISE [None]
  - NAUSEA [None]
  - ORAL DISORDER [None]
  - PALLOR [None]
  - PALPITATIONS [None]
  - PARAESTHESIA [None]
  - PHARYNGEAL OEDEMA [None]
  - RESTLESSNESS [None]
  - RETCHING [None]
  - SENSORY DISTURBANCE [None]
  - STOMACH DISCOMFORT [None]
  - SYNCOPE [None]
  - THIRST [None]
  - UNRESPONSIVE TO STIMULI [None]
  - VOMITING [None]
